FAERS Safety Report 11544716 (Version 3)
Quarter: 2015Q4

REPORT INFORMATION
  Report Type: Report from Study
  Country: US (occurrence: US)
  Receive Date: 20150924
  Receipt Date: 20151117
  Transmission Date: 20160304
  Serious: No
  Sender: FDA-Public Use
  Company Number: US-AMGEN-USASL2015095908

PATIENT
  Age: 27 Year
  Sex: Female
  Weight: 75.74 kg

DRUGS (2)
  1. ENBREL [Suspect]
     Active Substance: ETANERCEPT
     Indication: PSORIASIS
     Dosage: 50 MG QW
     Route: 058
     Dates: start: 20150821
  2. MIRENA [Concomitant]
     Active Substance: LEVONORGESTREL
     Indication: CONTRACEPTION
     Dosage: UNK

REACTIONS (5)
  - Injection site swelling [Recovered/Resolved]
  - Injection site erythema [Recovered/Resolved]
  - Injection site pruritus [Recovering/Resolving]
  - Injection site reaction [Recovering/Resolving]
  - Inappropriate schedule of drug administration [Unknown]

NARRATIVE: CASE EVENT DATE: 2015
